FAERS Safety Report 18543441 (Version 2)
Quarter: 2020Q4

REPORT INFORMATION
  Report Type: Report from Study
  Country: US (occurrence: US)
  Receive Date: 20201124
  Receipt Date: 20201215
  Transmission Date: 20210114
  Serious: Yes (Hospitalization, Other)
  Sender: FDA-Public Use
  Company Number: US-TAKEDA-2020TUS035432

PATIENT
  Sex: Male

DRUGS (3)
  1. VEDOLIZUMAB [Suspect]
     Active Substance: VEDOLIZUMAB
     Indication: COLITIS ULCERATIVE
  2. VEDOLIZUMAB [Suspect]
     Active Substance: VEDOLIZUMAB
     Indication: CONSTIPATION
     Dosage: 300 MILLIGRAM
     Route: 042
     Dates: start: 20200814
  3. VEDOLIZUMAB [Suspect]
     Active Substance: VEDOLIZUMAB
     Indication: CROHN^S DISEASE

REACTIONS (6)
  - Asthenia [Unknown]
  - Intestinal obstruction [Unknown]
  - Proctitis [Unknown]
  - Off label use [Unknown]
  - Haemorrhage [Unknown]
  - Constipation [Unknown]
